FAERS Safety Report 5338668-8 (Version None)
Quarter: 2007Q2

REPORT INFORMATION
  Report Type: 
  Country: None (occurrence: None)
  Receive Date: 20070530
  Receipt Date: 20070312
  Transmission Date: 20071010
  Serious: No
  Sender: FDA-Public Use
  Company Number: A0643130A

PATIENT
  Age: 84 Year
  Sex: Female

DRUGS (4)
  1. ALBUTEROL [Suspect]
     Indication: ASTHMA
     Route: 065
  2. XOPENEX [Suspect]
     Indication: ASTHMA
     Route: 065
  3. SINGULAIR [Suspect]
     Indication: ASTHMA
     Route: 065
  4. COMBIVENT [Suspect]
     Indication: ASTHMA
     Route: 065

REACTIONS (1)
  - DRUG INEFFECTIVE [None]
